FAERS Safety Report 10304064 (Version 2)
Quarter: 2014Q3

REPORT INFORMATION
  Report Type: Spontaneous
  Country: US (occurrence: US)
  Receive Date: 20140714
  Receipt Date: 20140714
  Transmission Date: 20150326
  Serious: No
  Sender: FDA-Public Use
  Company Number: US-GILEAD-2013-0085136

PATIENT
  Sex: Male

DRUGS (4)
  1. ADCIRCA [Concomitant]
     Active Substance: TADALAFIL
  2. LETAIRIS [Suspect]
     Active Substance: AMBRISENTAN
     Indication: PULMONARY HYPERTENSION
     Dosage: 5 MG, QD
     Route: 048
     Dates: start: 20130815, end: 20131002
  3. LETAIRIS [Suspect]
     Active Substance: AMBRISENTAN
     Indication: PORTAL VEIN THROMBOSIS
  4. REVATIO [Concomitant]
     Active Substance: SILDENAFIL CITRATE

REACTIONS (4)
  - Abdominal discomfort [Unknown]
  - Upper respiratory tract infection [Unknown]
  - Vomiting [Unknown]
  - Eructation [Unknown]
